FAERS Safety Report 23665706 (Version 2)
Quarter: 2024Q2

REPORT INFORMATION
  Report Type: Spontaneous
  Country: US (occurrence: US)
  Receive Date: 20240323
  Receipt Date: 20240404
  Transmission Date: 20240715
  Serious: No
  Sender: FDA-Public Use
  Company Number: US-AMGEN-USASP2024054637

PATIENT
  Age: 63 Year
  Sex: Female
  Weight: 45.351 kg

DRUGS (3)
  1. TAVNEOS [Suspect]
     Active Substance: AVACOPAN
     Indication: Granulomatosis with polyangiitis
     Dosage: 60 MILLIGRAM, QD
     Route: 048
     Dates: start: 202401
  2. TAVNEOS [Suspect]
     Active Substance: AVACOPAN
     Dosage: 10 MILLIGRAM
     Route: 048
     Dates: start: 202403
  3. PREDNISONE [Concomitant]
     Active Substance: PREDNISONE
     Dosage: UNK
     Route: 065

REACTIONS (7)
  - Thirst [Unknown]
  - Dizziness [Unknown]
  - Oedema peripheral [Unknown]
  - Asthenia [Unknown]
  - Vertigo [Unknown]
  - Balance disorder [Unknown]
  - Memory impairment [Unknown]

NARRATIVE: CASE EVENT DATE: 20240101
